FAERS Safety Report 6425523-5 (Version None)
Quarter: 2009Q4

REPORT INFORMATION
  Report Type: 
  Country: None (occurrence: None)
  Receive Date: 20091103
  Receipt Date: 20091023
  Transmission Date: 20100525
  Serious: Yes (Hospitalization, Other)
  Sender: FDA-Public Use
  Company Number: US-BAXTER-2009BH010863

PATIENT
  Age: 72 Year
  Sex: Female
  Weight: 78 kg

DRUGS (23)
  1. HEPARIN SODIUM INJECTION [Suspect]
     Indication: DRUG USE FOR UNKNOWN INDICATION
     Route: 042
     Dates: start: 20071101, end: 20071101
  2. FENTANYL-100 [Concomitant]
     Indication: DRUG USE FOR UNKNOWN INDICATION
     Route: 065
  3. SERTRALINE HCL [Concomitant]
     Indication: DRUG USE FOR UNKNOWN INDICATION
     Route: 065
  4. PROPOXYPHENE NAPSYLATE W/ ACETAMINOPHEN [Concomitant]
     Indication: DRUG USE FOR UNKNOWN INDICATION
     Route: 065
  5. QUININE SULFATE [Concomitant]
     Indication: DRUG USE FOR UNKNOWN INDICATION
     Route: 065
  6. SLOW-MAG [Concomitant]
     Indication: DRUG USE FOR UNKNOWN INDICATION
     Route: 065
  7. GABAPENTIN [Concomitant]
     Indication: DRUG USE FOR UNKNOWN INDICATION
     Route: 065
  8. ANZEMET [Concomitant]
     Indication: DRUG USE FOR UNKNOWN INDICATION
     Route: 065
  9. LIPITOR [Concomitant]
     Indication: DRUG USE FOR UNKNOWN INDICATION
     Route: 065
  10. TRIAMTERENE [Concomitant]
     Indication: DRUG USE FOR UNKNOWN INDICATION
     Route: 065
  11. VITAMINS [Concomitant]
     Indication: DRUG USE FOR UNKNOWN INDICATION
     Route: 065
  12. KLOR-CON [Concomitant]
     Indication: DRUG USE FOR UNKNOWN INDICATION
     Route: 065
  13. ATENOLOL [Concomitant]
     Indication: DRUG USE FOR UNKNOWN INDICATION
     Route: 065
  14. ALPRAZOLAM [Concomitant]
     Indication: DRUG USE FOR UNKNOWN INDICATION
     Route: 065
  15. PREVACID [Concomitant]
     Indication: DRUG USE FOR UNKNOWN INDICATION
     Route: 065
  16. TOLTERODINE TARTRATE [Concomitant]
     Indication: DRUG USE FOR UNKNOWN INDICATION
     Route: 065
  17. PREMARIN [Concomitant]
     Indication: DRUG USE FOR UNKNOWN INDICATION
     Route: 065
  18. ASPIRIN [Concomitant]
     Indication: DRUG USE FOR UNKNOWN INDICATION
     Route: 065
  19. LEXAPRO [Concomitant]
     Indication: DRUG USE FOR UNKNOWN INDICATION
     Route: 065
  20. FUROSEMIDE [Concomitant]
     Indication: DRUG USE FOR UNKNOWN INDICATION
     Route: 065
  21. MAGNESIUM [Concomitant]
     Indication: DRUG USE FOR UNKNOWN INDICATION
     Route: 065
  22. PROMETHAZINE HCL [Concomitant]
     Indication: DRUG USE FOR UNKNOWN INDICATION
     Route: 065
  23. DICYCLOMINE HYDROCHLORIDE [Concomitant]
     Indication: DRUG USE FOR UNKNOWN INDICATION
     Route: 065

REACTIONS (11)
  - ABASIA [None]
  - ABDOMINAL PAIN UPPER [None]
  - BACK DISORDER [None]
  - CONTUSION [None]
  - DEPRESSION [None]
  - HAEMORRHAGE [None]
  - HALLUCINATION [None]
  - HYPOTENSION [None]
  - RASH [None]
  - TOOTH LOSS [None]
  - VOMITING [None]
